FAERS Safety Report 4385851-4 (Version None)
Quarter: 2004Q2

REPORT INFORMATION
  Report Type: 
  Country: None (occurrence: None)
  Receive Date: 20040628
  Receipt Date: 20040524
  Transmission Date: 20050107
  Serious: Yes (Other)
  Sender: FDA-Public Use
  Company Number: FR-BRISTOL-MYERS SQUIBB COMPANY-12595898

PATIENT
  Age: 75 Year
  Sex: Female
  Weight: 38 kg

DRUGS (1)
  1. APROVEL TABS [Suspect]
     Indication: HYPERTENSION
     Route: 048
     Dates: start: 20020101

REACTIONS (1)
  - BLOOD AMYLASE INCREASED [None]
